FAERS Safety Report 17842360 (Version 1)
Quarter: 2020Q2

REPORT INFORMATION
  Report Type: Report from Study
  Country: IN (occurrence: IN)
  Receive Date: 20200529
  Receipt Date: 20200529
  Transmission Date: 20200714
  Serious: Yes (Other)
  Sender: FDA-Public Use
  Company Number: NVSC2019IN081517

PATIENT
  Age: 44 Year
  Sex: Female
  Weight: 65 kg

DRUGS (3)
  1. GALVUS MET [Suspect]
     Active Substance: METFORMIN HYDROCHLORIDE\VILDAGLIPTIN
     Dosage: 1 DF (METFORMIN 500 MG AND VILDAGLIPTIN 50 MG), QD
     Route: 048
     Dates: start: 201909
  2. GALVUS MET [Suspect]
     Active Substance: METFORMIN HYDROCHLORIDE\VILDAGLIPTIN
     Indication: DIABETES MELLITUS
     Dosage: 1 DF (METFORMIN 500 MG AND VILDAGLIPTIN 50 MG), BID (SINCE 2 YEARS)
     Route: 048
  3. GALVUS MET [Suspect]
     Active Substance: METFORMIN HYDROCHLORIDE\VILDAGLIPTIN
     Dosage: 1 DF (METFORMIN 500 MG AND VILDAGLIPTIN 50 MG), BID (POST MEAL)
     Route: 048

REACTIONS (17)
  - Sleep disorder [Unknown]
  - Chest pain [Unknown]
  - Inappropriate schedule of product administration [Unknown]
  - Neuropathy peripheral [Unknown]
  - Hyperglycaemia [Unknown]
  - Arthralgia [Unknown]
  - Gastric disorder [Unknown]
  - Alopecia [Unknown]
  - Neuralgia [Unknown]
  - Dyspnoea [Unknown]
  - Pollakiuria [Unknown]
  - Dysuria [Unknown]
  - Fluid intake reduced [Unknown]
  - Asthenia [Not Recovered/Not Resolved]
  - Muscle contracture [Unknown]
  - Malaise [Not Recovered/Not Resolved]
  - Haemoglobin decreased [Not Recovered/Not Resolved]

NARRATIVE: CASE EVENT DATE: 201909
